FAERS Safety Report 8540628-0 (Version None)
Quarter: 2012Q3

REPORT INFORMATION
  Report Type: 
  Country: None (occurrence: None)
  Receive Date: 20120713
  Receipt Date: 20120702
  Transmission Date: 20120928
  Serious: Yes (Other)
  Sender: FDA-Public Use
  Company Number: 2012AP002016

PATIENT
  Age: 43 Year
  Sex: Male

DRUGS (2)
  1. GLICLAZIDE (GLICLAZIDE) [Concomitant]
  2. METFFORMIN HYDROCHLORIDE [Suspect]
     Indication: DIABETES MELLITUS
     Dosage: 1000 MG; BID;PO
     Route: 048
     Dates: start: 20120531, end: 20120610

REACTIONS (1)
  - BLOOD PRESSURE INCREASED [None]
